FAERS Safety Report 9053559 (Version 1)
Quarter: 2013Q1

REPORT INFORMATION
  Report Type: Spontaneous
  Country: US (occurrence: None)
  Receive Date: 20130117
  Receipt Date: 20130117
  Transmission Date: 20140127
  Serious: Yes (Life-Threatening, Hospitalization)
  Sender: FDA-Public Use
  Company Number: 2013SP000248

PATIENT
  Sex: Male

DRUGS (1)
  1. VANCOMYCIN [Suspect]
     Indication: ARTHRITIS INFECTIVE
     Route: 042
     Dates: start: 201212, end: 201206

REACTIONS (1)
  - Drug hypersensitivity [None]
